FAERS Safety Report 9052849 (Version 1)
Quarter: 2013Q1

REPORT INFORMATION
  Report Type: Spontaneous
  Country: US (occurrence: US)
  Receive Date: 20130207
  Receipt Date: 20130207
  Transmission Date: 20140127
  Serious: Yes (Other)
  Sender: FDA-Public Use
  Company Number: US-PFIZER INC-2013046913

PATIENT
  Age: 59 Year
  Sex: Female

DRUGS (6)
  1. ZITHROMAX [Suspect]
     Dosage: UNK
  2. HUMIRA [Suspect]
     Indication: RHEUMATOID ARTHRITIS
     Dosage: 40 MG, 1 IN 2 WK
     Dates: start: 2008
  3. METHOTREXATE [Concomitant]
     Indication: RHEUMATOID ARTHRITIS
     Dosage: 0.4 MG, ONCE WEEKLY
  4. ALENDRONATE SODIUM [Concomitant]
     Indication: OSTEOPOROSIS
     Dosage: 70 MG, WEEKLY
  5. PREDNISONE [Concomitant]
     Dosage: 2 TABLETS, 1 IN 1 D
  6. FOLIC ACID [Concomitant]
     Dosage: UNK

REACTIONS (7)
  - Fall [Unknown]
  - Upper limb fracture [Unknown]
  - Joint range of motion decreased [Unknown]
  - Nasopharyngitis [Unknown]
  - Malaise [Unknown]
  - Nausea [Unknown]
  - Inflammation [Unknown]
